FAERS Safety Report 7076277 (Version 2)
Quarter: 2014Q3

REPORT INFORMATION
  Report Type: Spontaneous
  Country: US (occurrence: None)
  Receive Date: 20090803
  Receipt Date: 20140827
  Transmission Date: 20150326
  Serious: Yes (Other)
  Sender: FDA-Public Use
  Company Number: 2009S1005939

PATIENT

DRUGS (11)
  1. PHOSPHO-SODA [Suspect]
     Active Substance: SODIUM PHOSPHATE, DIBASIC\SODIUM PHOSPHATE, MONOBASIC
     Indication: COLONOSCOPY
     Dosage: PO
     Route: 048
     Dates: start: 20060206, end: 20070207
  2. RANITIDINE [Concomitant]
     Active Substance: RANITIDINE\RANITIDINE HYDROCHLORIDE
  3. LIPITOR [Concomitant]
     Active Substance: ATORVASTATIN CALCIUM
  4. CALCIUM D (COLECALCIFEROL, CALCIUM CARBONATE) [Concomitant]
  5. PREMARIN (ESTROGENS CONJUGATED) [Concomitant]
  6. NORVASC [Concomitant]
     Active Substance: AMLODIPINE BESYLATE
  7. CHLORTHALIDONE. [Concomitant]
     Active Substance: CHLORTHALIDONE
  8. BENICAR [Concomitant]
     Active Substance: OLMESARTAN MEDOXOMIL
  9. ASPIRIN. [Concomitant]
     Active Substance: ASPIRIN
  10. CELEREX (CELECOXIB) [Concomitant]
  11. FOSAMAX [Concomitant]
     Active Substance: ALENDRONATE SODIUM

REACTIONS (11)
  - Nephrocalcinosis [None]
  - Acute phosphate nephropathy [None]
  - Sepsis [None]
  - Hypotension [None]
  - Hyperparathyroidism secondary [None]
  - Renal failure acute [None]
  - Oedema [None]
  - Anaemia [None]
  - Renal failure chronic [None]
  - Headache [None]
  - Clostridium difficile colitis [None]

NARRATIVE: CASE EVENT DATE: 2006
